FAERS Safety Report 7032596-8 (Version None)
Quarter: 2010Q4

REPORT INFORMATION
  Report Type: 
  Country: None (occurrence: None)
  Receive Date: 20101007
  Receipt Date: 20100930
  Transmission Date: 20110411
  Serious: Yes (Hospitalization)
  Sender: FDA-Public Use
  Company Number: BE-CELGENEUS-013-C5013-10030269

PATIENT
  Sex: Female

DRUGS (5)
  1. CC-5013 [Suspect]
     Route: 048
     Dates: start: 20100118, end: 20100301
  2. CETUXIMAB [Suspect]
     Route: 051
     Dates: start: 20100222, end: 20100301
  3. CETUXIMAB [Suspect]
     Route: 051
     Dates: start: 20100118
  4. PARACETAMOL [Concomitant]
     Indication: HEADACHE
     Route: 048
     Dates: start: 20090601
  5. ALPRAZOLAM [Concomitant]
     Indication: ANXIETY
     Route: 048
     Dates: start: 20080101

REACTIONS (1)
  - GENERAL PHYSICAL HEALTH DETERIORATION [None]
